FAERS Safety Report 21971110 (Version 1)
Quarter: 2023Q1

REPORT INFORMATION
  Report Type: Spontaneous
  Country: GB (occurrence: GB)
  Receive Date: 20230209
  Receipt Date: 20230209
  Transmission Date: 20230417
  Serious: Yes (Other)
  Sender: FDA-Public Use
  Company Number: None

PATIENT
  Age: 82 Year
  Sex: Female

DRUGS (55)
  1. AFLIBERCEPT [Suspect]
     Active Substance: AFLIBERCEPT
     Indication: Neovascular age-related macular degeneration
     Dosage: 50 ?L, ONCE, RIGHT EYE (OD)
     Route: 031
     Dates: start: 20190806, end: 20190806
  2. AFLIBERCEPT [Suspect]
     Active Substance: AFLIBERCEPT
     Dosage: 50 ?L, ONCE, RIGHT EYE (OD)
     Route: 031
     Dates: start: 20191105, end: 20191105
  3. AFLIBERCEPT [Suspect]
     Active Substance: AFLIBERCEPT
     Dosage: 50 ?L, ONCE, RIGHT EYE (OD)
     Route: 031
     Dates: start: 20220727, end: 20220727
  4. AFLIBERCEPT [Suspect]
     Active Substance: AFLIBERCEPT
     Dosage: 50 ?L, ONCE, RIGHT EYE (OD)
     Route: 031
     Dates: start: 20210303, end: 20210303
  5. AFLIBERCEPT [Suspect]
     Active Substance: AFLIBERCEPT
     Dosage: 50 ?L, ONCE, RIGHT EYE (OD)
     Route: 031
     Dates: start: 20200819, end: 20200819
  6. AFLIBERCEPT [Suspect]
     Active Substance: AFLIBERCEPT
     Dosage: 50 ?L, ONCE, RIGHT EYE (OD)
     Route: 031
     Dates: start: 20201102, end: 20201102
  7. AFLIBERCEPT [Suspect]
     Active Substance: AFLIBERCEPT
     Dosage: 50 ?L, ONCE, RIGHT EYE (OD)
     Route: 031
     Dates: start: 20220608, end: 20220608
  8. AFLIBERCEPT [Suspect]
     Active Substance: AFLIBERCEPT
     Dosage: 50 ?L, ONCE, RIGHT EYE (OD)
     Route: 031
     Dates: start: 20210623, end: 20210623
  9. AFLIBERCEPT [Suspect]
     Active Substance: AFLIBERCEPT
     Dosage: 50 ?L, ONCE, RIGHT EYE (OD)
     Route: 031
     Dates: start: 20220824, end: 20220824
  10. AFLIBERCEPT [Suspect]
     Active Substance: AFLIBERCEPT
     Dosage: 50 ?L, ONCE, RIGHT EYE (OD)
     Route: 031
     Dates: start: 20201130, end: 20201130
  11. AFLIBERCEPT [Suspect]
     Active Substance: AFLIBERCEPT
     Dosage: 50 ?L, ONCE, RIGHT EYE (OD)
     Route: 031
     Dates: start: 20210331, end: 20210331
  12. AFLIBERCEPT [Suspect]
     Active Substance: AFLIBERCEPT
     Dosage: 50 ?L, ONCE, RIGHT EYE (OD)
     Route: 031
     Dates: start: 20200928, end: 20200928
  13. AFLIBERCEPT [Suspect]
     Active Substance: AFLIBERCEPT
     Dosage: 50 ?L, ONCE, RIGHT EYE (OD)
     Route: 031
     Dates: start: 20211006, end: 20211006
  14. AFLIBERCEPT [Suspect]
     Active Substance: AFLIBERCEPT
     Dosage: 50 ?L, ONCE, RIGHT EYE (OD)
     Route: 031
     Dates: start: 20210203, end: 20210203
  15. AFLIBERCEPT [Suspect]
     Active Substance: AFLIBERCEPT
     Dosage: 50 ?L, ONCE, RIGHT EYE (OD)
     Route: 031
     Dates: start: 20210802, end: 20210802
  16. AFLIBERCEPT [Suspect]
     Active Substance: AFLIBERCEPT
     Dosage: 50 ?L, ONCE, RIGHT EYE (OD)
     Route: 031
     Dates: start: 20200722, end: 20200722
  17. AFLIBERCEPT [Suspect]
     Active Substance: AFLIBERCEPT
     Dosage: 50 ?L, ONCE, RIGHT EYE (OD)
     Route: 031
     Dates: start: 20220209, end: 20220209
  18. AFLIBERCEPT [Suspect]
     Active Substance: AFLIBERCEPT
     Dosage: 50 ?L, ONCE, RIGHT EYE (OD)
     Route: 031
     Dates: start: 20210908, end: 20210908
  19. AFLIBERCEPT [Suspect]
     Active Substance: AFLIBERCEPT
     Dosage: 50 ?L, ONCE, RIGHT EYE (OD)
     Route: 031
     Dates: start: 20200422, end: 20200422
  20. AFLIBERCEPT [Suspect]
     Active Substance: AFLIBERCEPT
     Dosage: 50 ?L, ONCE, RIGHT EYE (OD)
     Route: 031
     Dates: start: 20200226, end: 20200226
  21. AFLIBERCEPT [Suspect]
     Active Substance: AFLIBERCEPT
     Dosage: 50 ?L, ONCE, RIGHT EYE (OD)
     Route: 031
     Dates: start: 20191002, end: 20191002
  22. AFLIBERCEPT [Suspect]
     Active Substance: AFLIBERCEPT
     Dosage: 50 ?L, ONCE, RIGHT EYE (OD)
     Route: 031
     Dates: start: 20200325, end: 20200325
  23. AFLIBERCEPT [Suspect]
     Active Substance: AFLIBERCEPT
     Dosage: 50 ?L, ONCE, RIGHT EYE (OD)
     Route: 031
     Dates: start: 20190904, end: 20190904
  24. AFLIBERCEPT [Suspect]
     Active Substance: AFLIBERCEPT
     Dosage: 50 ?L, ONCE, RIGHT EYE (OD)
     Route: 031
     Dates: start: 20191204, end: 20191204
  25. AFLIBERCEPT [Suspect]
     Active Substance: AFLIBERCEPT
     Dosage: 50 ?L, ONCE, RIGHT EYE (OD)
     Route: 031
     Dates: start: 20200129, end: 20200129
  26. AFLIBERCEPT [Suspect]
     Active Substance: AFLIBERCEPT
     Dosage: 50 ?L, ONCE, RIGHT EYE (OD)
     Route: 031
     Dates: start: 20200129, end: 20200129
  27. AFLIBERCEPT [Suspect]
     Active Substance: AFLIBERCEPT
     Dosage: 50 ?L, ONCE, RIGHT EYE (OD)
     Route: 031
     Dates: start: 20200610, end: 20200610
  28. AMITRIPTYLINE [Concomitant]
     Active Substance: AMITRIPTYLINE
     Indication: Rheumatoid arthritis
     Dosage: 25 MG, QD
     Dates: start: 20131111
  29. AMLODIPINE [Concomitant]
     Active Substance: AMLODIPINE BESYLATE
     Indication: Hypertension
     Dosage: 5 MG, QD
     Dates: start: 20071113
  30. ATORVASTATIN [Concomitant]
     Active Substance: ATORVASTATIN
     Indication: Secondary hypertension
     Dosage: 20 MG, QD
     Dates: start: 20130218
  31. BENDROFLUMETHIAZIDE [Concomitant]
     Active Substance: BENDROFLUMETHIAZIDE
     Indication: Hypertension
     Dosage: 2.5 MG, QD
     Dates: start: 20071113
  32. ETORICOXIB [Concomitant]
     Active Substance: ETORICOXIB
     Indication: Rheumatoid arthritis
     Dosage: 90 MG, QD
     Dates: start: 20021105
  33. EYLEA [Concomitant]
     Active Substance: AFLIBERCEPT
     Dosage: 50 ?L, ONCE, FELLOW EYE
     Route: 031
     Dates: start: 20220824, end: 20220824
  34. EYLEA [Concomitant]
     Active Substance: AFLIBERCEPT
     Dosage: 50 ?L, ONCE, FELLOW EYE
     Route: 031
     Dates: start: 20210908, end: 20210908
  35. EYLEA [Concomitant]
     Active Substance: AFLIBERCEPT
     Dosage: 50 ?L, ONCE, FELLOW EYE
     Route: 031
     Dates: start: 20201102, end: 20201102
  36. EYLEA [Concomitant]
     Active Substance: AFLIBERCEPT
     Dosage: 50 ?L, ONCE, FELLOW EYE
     Route: 031
     Dates: start: 20200610, end: 20200610
  37. EYLEA [Concomitant]
     Active Substance: AFLIBERCEPT
     Dosage: 50 ?L, ONCE, FELLOW EYE
     Route: 031
     Dates: start: 20210623, end: 20210623
  38. EYLEA [Concomitant]
     Active Substance: AFLIBERCEPT
     Dosage: 50 ?L, ONCE, FELLOW EYE
     Route: 031
     Dates: start: 20210203, end: 20210203
  39. EYLEA [Concomitant]
     Active Substance: AFLIBERCEPT
     Dosage: 50 ?L, ONCE, FELLOW EYE
     Route: 031
     Dates: start: 20201130, end: 20201130
  40. EYLEA [Concomitant]
     Active Substance: AFLIBERCEPT
     Dosage: 50 ?L, ONCE, FELLOW EYE
     Route: 031
     Dates: start: 20210331, end: 20210331
  41. EYLEA [Concomitant]
     Active Substance: AFLIBERCEPT
     Dosage: 50 ?L, ONCE, FELLOW EYE
     Route: 031
     Dates: start: 20220608, end: 20220609
  42. EYLEA [Concomitant]
     Active Substance: AFLIBERCEPT
     Dosage: 50 ?L, ONCE, FELLOW EYE
     Route: 031
     Dates: start: 20210303, end: 20210303
  43. EYLEA [Concomitant]
     Active Substance: AFLIBERCEPT
     Dosage: 50 ?L, ONCE, FELLOW EYE
     Route: 031
     Dates: start: 20220209, end: 20220209
  44. EYLEA [Concomitant]
     Active Substance: AFLIBERCEPT
     Dosage: 50 ?L, ONCE, FELLOW EYE
     Route: 031
     Dates: start: 20200928, end: 20200928
  45. EYLEA [Concomitant]
     Active Substance: AFLIBERCEPT
     Dosage: 50 ?L, ONCE, FELLOW EYE
     Route: 031
     Dates: start: 20211006, end: 20211006
  46. EYLEA [Concomitant]
     Active Substance: AFLIBERCEPT
     Dosage: 50 ?L, ONCE, FELLOW EYE
     Route: 031
     Dates: start: 20200428, end: 20200428
  47. EYLEA [Concomitant]
     Active Substance: AFLIBERCEPT
     Dosage: 50 ?L, ONCE, FELLOW EYE
     Route: 031
     Dates: start: 20200722, end: 20200722
  48. EYLEA [Concomitant]
     Active Substance: AFLIBERCEPT
     Dosage: 50 ?L, ONCE, FELLOW EYE
     Route: 031
     Dates: start: 20220727, end: 20220727
  49. EYLEA [Concomitant]
     Active Substance: AFLIBERCEPT
     Dosage: 50 ?L, ONCE, FELLOW EYE
     Route: 031
     Dates: start: 20200819, end: 20200819
  50. FLUOXETINE [Concomitant]
     Active Substance: FLUOXETINE HYDROCHLORIDE
     Indication: Depression
     Dosage: 40 MG, QD
     Dates: start: 20220222
  51. CHOLECALCIFEROL [Concomitant]
     Active Substance: CHOLECALCIFEROL
     Indication: Osteoporosis
     Dosage: 800 IU, QD
     Dates: start: 20160314
  52. FUROSEMIDE [Concomitant]
     Active Substance: FUROSEMIDE
     Indication: Hypertension
     Dosage: 10 MG, QD
     Dates: start: 20110617
  53. KETOPROFEN [Concomitant]
     Active Substance: KETOPROFEN
     Indication: Rheumatoid arthritis
     Dosage: SMEARS OF CREAM PER DAY TO AFFECTED AREAS
     Route: 061
     Dates: start: 20110617
  54. OMEPRAZOLE [Concomitant]
     Active Substance: OMEPRAZOLE
     Indication: Gastritis prophylaxis
     Dosage: 20 MG, QD
     Dates: start: 20100607
  55. LEVOTHYROXINE SODIUM [Concomitant]
     Active Substance: LEVOTHYROXINE SODIUM
     Indication: Hypothyroidism
     Dosage: 25 ?G, QD
     Dates: start: 20160314

REACTIONS (1)
  - Retinal pigment epithelial tear [Recovered/Resolved]

NARRATIVE: CASE EVENT DATE: 20190904
